FAERS Safety Report 12932766 (Version 2)
Quarter: 2016Q4

REPORT INFORMATION
  Report Type: Spontaneous
  Country: JP (occurrence: JP)
  Receive Date: 20161111
  Receipt Date: 20161129
  Transmission Date: 20170207
  Serious: Yes (Other)
  Sender: FDA-Public Use
  Company Number: JP-ASTELLAS-2016JP019032

PATIENT
  Age: 9 Decade
  Sex: Male

DRUGS (1)
  1. PROGRAF [Suspect]
     Active Substance: TACROLIMUS\TACROLIMUS ANHYDROUS
     Indication: CHRONIC INFLAMMATORY DEMYELINATING POLYRADICULONEUROPATHY
     Dosage: UNK UNK, UNKNOWN FREQ.
     Route: 048
     Dates: start: 201310, end: 2014

REACTIONS (2)
  - Drug ineffective for unapproved indication [Unknown]
  - Glomerular filtration rate decreased [Unknown]
